FAERS Safety Report 17838173 (Version 1)
Quarter: 2020Q2

REPORT INFORMATION
  Report Type: Spontaneous
  Country: CA (occurrence: CA)
  Receive Date: 20200528
  Receipt Date: 20200528
  Transmission Date: 20200714
  Serious: Yes (Hospitalization, Other)
  Sender: FDA-Public Use
  Company Number: CA-BAXTER-2020BAX010770

PATIENT
  Age: 74 Year
  Sex: Male

DRUGS (1)
  1. 0.9% SODIUM CHLORIDE IRRIGATION [Suspect]
     Active Substance: SODIUM CHLORIDE
     Indication: PRODUCT USED FOR UNKNOWN INDICATION
     Dosage: DOSAGE FORM: SOLUTION INTRAPERITONIAL
     Route: 065

REACTIONS (4)
  - Gastrointestinal disorder [Unknown]
  - Device issue [Unknown]
  - Intestinal perforation [Unknown]
  - Peritonitis [Unknown]
